FAERS Safety Report 5072697-7 (Version None)
Quarter: 2006Q3

REPORT INFORMATION
  Report Type: 
  Country: None (occurrence: None)
  Receive Date: 20060801
  Receipt Date: 20060717
  Transmission Date: 20061208
  Serious: Yes (Hospitalization)
  Sender: FDA-Public Use
  Company Number: E3810-00050-CLI-US

PATIENT
  Age: 65 Year
  Sex: Female
  Weight: 64 kg

DRUGS (20)
  1. ACIPHEX [Suspect]
     Indication: DYSPEPSIA
     Dosage: 10 MG, 1 IN 1 D, ORAL
     Route: 048
     Dates: start: 20060508, end: 20060601
  2. DIAZEPAM [Concomitant]
  3. ZOLOFT [Concomitant]
  4. PRIMIDONE [Concomitant]
  5. LAMICTAL [Concomitant]
  6. FUROSEMIDE [Concomitant]
  7. PROTONIX [Concomitant]
  8. NORVASC [Concomitant]
  9. COZAAR [Concomitant]
  10. POTASSIUM [Concomitant]
  11. FOSAMAX [Concomitant]
  12. BUSPIRONE HCL (BUSPIRONE HYDROCHLORIDE) [Concomitant]
  13. LESCOL XL [Concomitant]
  14. NEXIUM [Concomitant]
  15. CALCIUM WITH VITAMIN D (CALCIUM WITH VITAMIN D) [Concomitant]
  16. GAVISCON [Concomitant]
  17. MACRODANTIN [Concomitant]
  18. BUMEX [Concomitant]
  19. LOPRESSOR [Concomitant]
  20. LEVAQUIN [Concomitant]

REACTIONS (3)
  - CORONARY ARTERY BYPASS [None]
  - LOCALISED INFECTION [None]
  - POST PROCEDURAL COMPLICATION [None]
